FAERS Safety Report 7014580-3 (Version None)
Quarter: 2010Q3

REPORT INFORMATION
  Report Type: 
  Country: None (occurrence: None)
  Receive Date: 20100927
  Receipt Date: 20100826
  Transmission Date: 20110219
  Serious: No
  Sender: FDA-Public Use
  Company Number: US-BAYER-201019524BCC

PATIENT
  Age: 51 Year
  Sex: Male
  Weight: 86 kg

DRUGS (4)
  1. ALEVE [Suspect]
     Indication: PAIN PROPHYLAXIS
     Dosage: TOTAL DAILY DOSE: 220 MG  UNIT DOSE: 220 MG
     Route: 048
     Dates: start: 20100826
  2. LIALDA [Concomitant]
     Route: 065
  3. VITAMIN D [Concomitant]
     Route: 065
  4. CENTRUM [Concomitant]
     Route: 065

REACTIONS (5)
  - DIZZINESS [None]
  - ERYTHEMA [None]
  - HYPERSENSITIVITY [None]
  - PRURITUS [None]
  - SWOLLEN TONGUE [None]
